FAERS Safety Report 4918875-6 (Version None)
Quarter: 2006Q1

REPORT INFORMATION
  Report Type: 
  Country: None (occurrence: None)
  Receive Date: 20060222
  Receipt Date: 20060209
  Transmission Date: 20060701
  Serious: Yes (Hospitalization)
  Sender: FDA-Public Use
  Company Number: FR-ROCHE-435934

PATIENT
  Age: 55 Year
  Sex: Male

DRUGS (5)
  1. FUZEON [Suspect]
     Indication: HIV INFECTION
     Route: 058
     Dates: start: 20051221
  2. TIPRANAVIR [Suspect]
     Indication: HIV INFECTION
     Route: 048
     Dates: start: 20051221
  3. NORVIR [Suspect]
     Indication: HIV INFECTION
     Route: 048
     Dates: start: 20051221
  4. VIDEX [Suspect]
     Indication: HIV INFECTION
     Route: 048
     Dates: start: 20000215
  5. APTIVUS [Concomitant]
     Dates: start: 20051221

REACTIONS (3)
  - ALANINE AMINOTRANSFERASE INCREASED [None]
  - ASPARTATE AMINOTRANSFERASE INCREASED [None]
  - CYTOLYTIC HEPATITIS [None]
